FAERS Safety Report 22349322 (Version 4)
Quarter: 2025Q2

REPORT INFORMATION
  Report Type: Report from Study
  Country: CA (occurrence: CA)
  Receive Date: 20230522
  Receipt Date: 20250624
  Transmission Date: 20250716
  Serious: Yes (Hospitalization)
  Sender: JOHNSON AND JOHNSON
  Company Number: CA-JNJFOC-20230543554

PATIENT
  Age: 13 Year
  Sex: Male
  Weight: 45 kg

DRUGS (2)
  1. REMICADE [Suspect]
     Active Substance: INFLIXIMAB
     Indication: Crohn^s disease
     Dosage: EXPIRY DATE: 31-AUG-2025, 30-SEP-2025
     Route: 041
     Dates: start: 20230207
  2. REMICADE [Suspect]
     Active Substance: INFLIXIMAB
     Dosage: ON 27-JUN-2023, THE PATIENT RECEIVED 5TH INFLIXIMAB INFUSION FOR DOSE OF 300 MG AND PARTIAL HARVEY-B
     Route: 041
     Dates: start: 2023

REACTIONS (6)
  - Crohn^s disease [Unknown]
  - Lymphadenopathy [Recovering/Resolving]
  - Skin ulcer [Unknown]
  - Off label use [Unknown]
  - Infection [Recovered/Resolved]
  - Incorrect drug administration rate [Unknown]

NARRATIVE: CASE EVENT DATE: 20230101
